FAERS Safety Report 8937043 (Version 2)
Quarter: 2013Q1

REPORT INFORMATION
  Report Type: Report from Study
  Country: JP (occurrence: JP)
  Receive Date: 20121130
  Receipt Date: 20130303
  Transmission Date: 20140127
  Serious: Yes (Other)
  Sender: FDA-Public Use
  Company Number: JP-009507513-2012SP034199

PATIENT
  Age: 55 Year
  Sex: Female
  Weight: 54 kg

DRUGS (11)
  1. PEGINTRON [Suspect]
     Indication: CHRONIC HEPATITIS C
     Dosage: 1.5 MICROGRAM PER KILOGRAM, QW
     Route: 058
     Dates: start: 20120517, end: 20120531
  2. REBETOL [Suspect]
     Indication: CHRONIC HEPATITIS C
     Dosage: 400 MG, QD
     Route: 048
     Dates: start: 20120517, end: 20120523
  3. REBETOL [Suspect]
     Dosage: 200 MG, QD
     Route: 048
     Dates: start: 20120524, end: 20120606
  4. TELAVIC [Suspect]
     Indication: CHRONIC HEPATITIS C
     Dosage: 1500 MG, QD
     Route: 048
     Dates: start: 20120517, end: 20120606
  5. MUCODYNE [Concomitant]
     Indication: BRONCHITIS CHRONIC
     Dosage: UNK(FORMULATION POR)
     Route: 048
  6. BENZALIN [Concomitant]
     Indication: DEPRESSION
     Dosage: 5 MG, QD, FORMULATION: POR
     Route: 048
  7. RHYTHMY [Concomitant]
     Indication: DEPRESSION
     Dosage: 2 MG, QD, FORMULATION: POR
     Route: 048
  8. DEPAKENE [Concomitant]
     Indication: DEPRESSION
     Dosage: 200 MG, QD. FORMULATION: POR
     Route: 048
  9. CALONAL [Concomitant]
     Indication: PYREXIA
     Dosage: 200 MG, QD, FORMULATION: POR
     Route: 048
     Dates: start: 20120517
  10. MYSLEE [Concomitant]
     Indication: INSOMNIA
     Dosage: 10 MG PER DAY AS NEEDED, FORMULATION: POR
     Route: 048
     Dates: start: 20120517, end: 20120531
  11. VITANEURIN (FURSULTIAMINE HYDROCHLORIDE (+) HYDROXOCOBALAMIN ACETATE ( [Concomitant]
     Indication: HYPOVITAMINOSIS
     Dosage: 150 MG, QD, FORMULATION:POR
     Route: 048

REACTIONS (2)
  - Stevens-Johnson syndrome [Recovering/Resolving]
  - Neutrophil count decreased [Recovered/Resolved]
